FAERS Safety Report 4278540-8 (Version None)
Quarter: 2004Q1

REPORT INFORMATION
  Report Type: 
  Country: None (occurrence: None)
  Receive Date: 20040122
  Receipt Date: 20040115
  Transmission Date: 20041129
  Serious: Yes (Other)
  Sender: FDA-Public Use
  Company Number: ENT 2003-0172

PATIENT
  Age: 84 Year
  Sex: Female

DRUGS (7)
  1. COMTAN [Suspect]
     Indication: PARKINSON'S DISEASE
     Dosage: 3 TABLETS / DAILY
     Route: 048
     Dates: start: 20030801
  2. SINEMET [Concomitant]
  3. STARLIX [Concomitant]
  4. INSULIN [Concomitant]
  5. ENALAPRIL MALEATE [Concomitant]
  6. LANITOP [Concomitant]
  7. MODURETIC 5-50 [Concomitant]

REACTIONS (3)
  - ANXIETY [None]
  - CARDIAC DISORDER [None]
  - LUNG DISORDER [None]
